FAERS Safety Report 17301810 (Version 1)
Quarter: 2020Q1

REPORT INFORMATION
  Report Type: Spontaneous
  Country: FR (occurrence: FR)
  Receive Date: 20200122
  Receipt Date: 20200122
  Transmission Date: 20200409
  Serious: Yes (Other)
  Sender: FDA-Public Use
  Company Number: FR-BAXTER-2020BAX000851

PATIENT
  Age: 13 Year
  Sex: Female

DRUGS (2)
  1. ENDOXAN 1000 MG, POUDRE POUR SOLUTIONINJECTABLE [Suspect]
     Active Substance: CYCLOPHOSPHAMIDE
     Indication: BENIGN LUNG NEOPLASM
     Dosage: UNK, QD
     Route: 065
     Dates: start: 201702, end: 201705
  2. VINORELBINE [Suspect]
     Active Substance: VINORELBINE TARTRATE
     Indication: BENIGN LUNG NEOPLASM
     Dosage: UNK, QD (ON DAY 1, DAY 8 AND DAY 15)
     Route: 065
     Dates: start: 201702, end: 201705

REACTIONS (3)
  - Malignant neoplasm progression [Unknown]
  - Product use in unapproved indication [Unknown]
  - Benign lung neoplasm [Unknown]
